FAERS Safety Report 5269686-6 (Version None)
Quarter: 2007Q1

REPORT INFORMATION
  Report Type: 
  Country: None (occurrence: None)
  Receive Date: 20070313
  Receipt Date: 20070309
  Transmission Date: 20070707
  Serious: Yes (Death)
  Sender: FDA-Public Use
  Company Number: THQ2007A00194

PATIENT
  Age: 77 Year
  Sex: Male

DRUGS (22)
  1. LANSOPRAZOLE [Suspect]
  2. ASPIRIN [Suspect]
  3. ATORVASTATIN CALCIUM [Suspect]
  4. BECLOMETHASONE DIPROPIONATE [Suspect]
     Dosage: (1 IN 1 D) RESPIRATORY (INHALATION)
     Route: 055
  5. DEXAMETHASONE [Concomitant]
  6. DILTIAZEM [Suspect]
     Dosage: (1 IN 1 D)
  7. DOSULEPIN [Suspect]
     Dosage: ( 1 IN 1 D)
  8. FRUMIL [Suspect]
  9. FUROSEMIDE [Suspect]
     Dosage: (1 IN 1 D)
  10. GAVISCON [Suspect]
     Dosage: (1 IN 1 D)
  11. LACTULOSE [Suspect]
  12. METOCLOPRAMIDE [Suspect]
     Dosage: (1 IN 1 D)
  13. NITROLINGUAL (GLYCERYL TRINITRATE) [Suspect]
  14. NOZINAN (LEVOMEPROMAZINE) [Concomitant]
  15. OXYCODONE HCL [Suspect]
     Dosage: (1 IN 1 D)
  16. OXYGEN [Suspect]
     Dosage: RESPIRATORY (INHALATION)
     Route: 055
  17. COMBIVENT [Suspect]
     Indication: CHRONIC OBSTRUCTIVE PULMONARY DISEASE
     Dosage: (4 IN 1 D) RESPIRATORY (INHALATION)
     Route: 055
     Dates: start: 20030617, end: 20040513
  18. SALBUTAMOL [Concomitant]
     Dosage: (1 IN 1 D) RESPIRATORY (INHALATION)
     Route: 055
  19. SPIRIVA [Suspect]
     Dosage: (18 MCG) RESPIRATORY (INHALATION)
     Route: 055
     Dates: start: 20030617
  20. SPIRONOLACTONE [Suspect]
  21. SYMBICORT [Suspect]
     Dosage: RESPIRATION (INHALATION)
     Route: 055
  22. TEMAZEPAM [Suspect]
     Dosage: (1 IN 1 D)

REACTIONS (1)
  - MESOTHELIOMA [None]
